FAERS Safety Report 5095263-6 (Version None)
Quarter: 2006Q3

REPORT INFORMATION
  Report Type: 
  Country: None (occurrence: None)
  Receive Date: 20060731
  Receipt Date: 20060418
  Transmission Date: 20061208
  Serious: No
  Sender: FDA-Public Use
  Company Number: 2006PV012260

PATIENT
  Age: 71 Year
  Sex: Male
  Weight: 93.441 kg

DRUGS (6)
  1. BYETTA [Suspect]
     Indication: DIABETES MELLITUS NON-INSULIN-DEPENDENT
     Dosage: 5 MCG BID SC
     Route: 058
     Dates: start: 20060329
  2. GLIMEPRIRIDE [Concomitant]
  3. ACTOS [Concomitant]
  4. GABAPENTIN [Concomitant]
  5. COZAAR [Concomitant]
  6. CRESTOR [Concomitant]

REACTIONS (2)
  - EARLY SATIETY [None]
  - INFREQUENT BOWEL MOVEMENTS [None]
